FAERS Safety Report 16451965 (Version 1)
Quarter: 2019Q2

REPORT INFORMATION
  Report Type: Spontaneous
  Country: US (occurrence: US)
  Receive Date: 20190619
  Receipt Date: 20190619
  Transmission Date: 20190711
  Serious: No
  Sender: FDA-Public Use
  Company Number: US-ROCHE-2144955

PATIENT
  Sex: Female

DRUGS (6)
  1. XELJANZ XR [Concomitant]
     Active Substance: TOFACITINIB CITRATE
     Dosage: QUANTITY NUMBER 30 (30 DAYS)
     Route: 048
  2. HUMIRA [Concomitant]
     Active Substance: ADALIMUMAB
     Route: 065
     Dates: start: 20130306, end: 20130711
  3. SULFASALAZINE. [Concomitant]
     Active Substance: SULFASALAZINE
     Dosage: INEFFECTIVE
     Route: 065
     Dates: start: 20140605, end: 20141001
  4. ACTEMRA [Suspect]
     Active Substance: TOCILIZUMAB
     Indication: RHEUMATOID ARTHRITIS
     Route: 042
     Dates: start: 20151006, end: 20180319
  5. ENBREL [Concomitant]
     Active Substance: ETANERCEPT
     Dosage: REACTION
     Route: 065
     Dates: start: 20120201, end: 20120312
  6. METHOTREXATE. [Concomitant]
     Active Substance: METHOTREXATE
     Route: 065
     Dates: start: 20101215

REACTIONS (2)
  - Drug ineffective [Unknown]
  - No adverse event [Unknown]
